FAERS Safety Report 6163278-2 (Version None)
Quarter: 2009Q2

REPORT INFORMATION
  Report Type: 
  Country: None (occurrence: None)
  Receive Date: 20090420
  Receipt Date: 20090403
  Transmission Date: 20091009
  Serious: Yes (Other)
  Sender: FDA-Public Use
  Company Number: 2009EU001489

PATIENT
  Age: 24 Year
  Sex: Female

DRUGS (2)
  1. PROTOPIC [Suspect]
     Indication: DERMATITIS ATOPIC
     Dosage: 0.1%, UNKNOWN/D; 0.1%, UNKNOWN/D
     Dates: start: 20081101, end: 20081201
  2. PROTOPIC [Suspect]
     Indication: DERMATITIS ATOPIC
     Dosage: 0.1%, UNKNOWN/D; 0.1%, UNKNOWN/D
     Dates: start: 20060901

REACTIONS (4)
  - APPLICATION SITE REACTION [None]
  - GINGIVITIS [None]
  - LYMPHADENOPATHY [None]
  - NEOPLASM SKIN [None]
